FAERS Safety Report 5447609-4 (Version None)
Quarter: 2007Q3

REPORT INFORMATION
  Report Type: 
  Country: None (occurrence: None)
  Receive Date: 20070910
  Receipt Date: 20070828
  Transmission Date: 20080115
  Serious: Yes (Other)
  Sender: FDA-Public Use
  Company Number: BR-ROCHE-503856

PATIENT
  Age: 25 Year
  Sex: Female
  Weight: 53 kg

DRUGS (4)
  1. CLONAZEPAM [Suspect]
     Indication: PANIC ATTACK
     Route: 048
     Dates: start: 20070525
  2. SERTRALINE HYDROCHLORIDE [Concomitant]
     Indication: DEPRESSION
     Dosage: TRADE NAME REPORTED AS SERENATA. OTHER INDICATION: PANIC SYNDROME.
     Route: 048
  3. HALDOL [Concomitant]
     Route: 048
  4. UNSPECIFIED DRUG [Concomitant]
     Dosage: DRUG NAME: NUTRITIONAL SUPPLEMENTS/DEFATIG. OTHER INDICATION: WEAKNESS.

REACTIONS (9)
  - ANOREXIA [None]
  - FEELING ABNORMAL [None]
  - GINGIVAL PAIN [None]
  - GINGIVAL PRURITUS [None]
  - HYPERTENSION [None]
  - HYPOTENSION [None]
  - MIGRAINE [None]
  - TACHYCARDIA [None]
  - TOOTHACHE [None]
